FAERS Safety Report 4899398-X (Version None)
Quarter: 2006Q1

REPORT INFORMATION
  Report Type: 
  Country: None (occurrence: None)
  Receive Date: 20060118
  Receipt Date: 20051003
  Transmission Date: 20060701
  Serious: No
  Sender: FDA-Public Use
  Company Number: 2005001940

PATIENT
  Age: 80 Year
  Sex: Female

DRUGS (11)
  1. TARCEVA [Suspect]
     Indication: LUNG NEOPLASM MALIGNANT
     Dosage: 150 MG (QD), ORAL
     Route: 048
     Dates: start: 20050701
  2. MINIPRESS [Concomitant]
  3. TIAZAC [Concomitant]
  4. DIURETICS (DIURETICS) [Concomitant]
  5. LEVOXYL [Concomitant]
  6. NEXIUM [Concomitant]
  7. ATENOLOL [Concomitant]
  8. LIPITOR [Concomitant]
  9. NORTRIPTYLINE HCL [Concomitant]
  10. VITAMINS (VITAMINS) [Concomitant]
  11. ASPIRIN [Concomitant]

REACTIONS (2)
  - DIARRHOEA [None]
  - DYSGEUSIA [None]
